FAERS Safety Report 10591088 (Version 3)
Quarter: 2015Q1

REPORT INFORMATION
  Report Type: Spontaneous
  Country: US (occurrence: US)
  Receive Date: 20141118
  Receipt Date: 20150211
  Transmission Date: 20150720
  Serious: Yes (Hospitalization, Other)
  Sender: FDA-Public Use
  Company Number: US-GILEAD-2014-0122861

PATIENT
  Age: 73 Year
  Sex: Female

DRUGS (4)
  1. TYVASO [Concomitant]
     Active Substance: TREPROSTINIL
  2. ADCIRCA [Concomitant]
     Active Substance: TADALAFIL
  3. LETAIRIS [Suspect]
     Active Substance: AMBRISENTAN
     Indication: PRODUCT USED FOR UNKNOWN INDICATION
     Dosage: 10 MG, UNK
     Route: 065
     Dates: start: 20141016
  4. LETAIRIS [Suspect]
     Active Substance: AMBRISENTAN
     Dosage: 5 MG, QD
     Route: 065
     Dates: start: 20141017, end: 20150106

REACTIONS (9)
  - Sinusitis [Recovering/Resolving]
  - Fatigue [Unknown]
  - Pyrexia [Unknown]
  - Pericardial effusion [Unknown]
  - Ear discomfort [Recovering/Resolving]
  - Respiratory failure [Unknown]
  - Pleural effusion [Unknown]
  - Peripheral swelling [Unknown]
  - Disease progression [Unknown]
